FAERS Safety Report 8809934 (Version 3)
Quarter: 2013Q4

REPORT INFORMATION
  Report Type: Spontaneous
  Country: FR (occurrence: FR)
  Receive Date: 20120926
  Receipt Date: 20131031
  Transmission Date: 20140711
  Serious: Yes (Hospitalization, Other)
  Sender: FDA-Public Use
  Company Number: FR-009507513-1201FRA00104

PATIENT
  Age: 61 Year
  Sex: Female

DRUGS (11)
  1. FOSAMAX [Suspect]
     Indication: OSTEOPOROSIS
     Dosage: 70 MG, QW
     Route: 048
     Dates: start: 2001, end: 20111216
  2. PLAVIX [Concomitant]
     Indication: ARTERIAL DISORDER
     Dosage: UNK
  3. CRESTOR [Concomitant]
     Dosage: UNK
  4. DELURSAN [Concomitant]
     Dosage: UNK
  5. LEXOMIL [Concomitant]
     Dosage: UNK
  6. OROCAL [Concomitant]
     Dosage: UNK
  7. PRAXILENE [Concomitant]
     Dosage: UNK
  8. INEXIUM [Concomitant]
     Dosage: UNK
  9. DAFALGAN CODEINE [Concomitant]
     Dosage: UNK
  10. MONURIL [Concomitant]
     Dosage: UNK
  11. MONO-TILDIEM [Concomitant]
     Dosage: UNK

REACTIONS (5)
  - Femur fracture [Recovering/Resolving]
  - Tibia fracture [Recovering/Resolving]
  - Rib fracture [Unknown]
  - Fall [Unknown]
  - Ankle fracture [Unknown]
